FAERS Safety Report 6175152-6 (Version None)
Quarter: 2009Q2

REPORT INFORMATION
  Report Type: 
  Country: None (occurrence: None)
  Receive Date: 20090430
  Receipt Date: 20090112
  Transmission Date: 20091009
  Serious: No
  Sender: FDA-Public Use
  Company Number: US-ASTRAZENECA-2009UW00962

PATIENT
  Age: 49 Year
  Sex: Male
  Weight: 131.5 kg

DRUGS (3)
  1. NEXIUM [Suspect]
     Indication: GASTROOESOPHAGEAL REFLUX DISEASE
     Dosage: 1 CAPSULE PER DAY
     Route: 048
     Dates: start: 20070101
  2. NEXIUM [Suspect]
     Dosage: 1 CAPSULE PER DAY
     Route: 048
     Dates: start: 20070101
  3. HYZAAR [Concomitant]

REACTIONS (2)
  - DRUG INEFFECTIVE [None]
  - THROAT IRRITATION [None]
